FAERS Safety Report 13134316 (Version 2)
Quarter: 2018Q2

REPORT INFORMATION
  Report Type: Spontaneous
  Country: US (occurrence: US)
  Receive Date: 20170120
  Receipt Date: 20180426
  Transmission Date: 20180711
  Serious: Yes (Other)
  Sender: FDA-Public Use
  Company Number: US-SAOL THERAPEUTICS-2017SAO00104

PATIENT
  Age: 47 Year
  Sex: Male

DRUGS (6)
  1. BACLOFEN. [Suspect]
     Active Substance: BACLOFEN
     Indication: POST LAMINECTOMY SYNDROME
     Dosage: 117.46 ?G, \DAY
     Route: 037
  2. BACLOFEN. [Suspect]
     Active Substance: BACLOFEN
     Indication: PAIN
  3. BACLOFEN. [Suspect]
     Active Substance: BACLOFEN
     Indication: BACK PAIN
  4. HYDROMORPHONE [Suspect]
     Active Substance: HYDROMORPHONE
     Dosage: 9.997 MG, \DAY
     Route: 037
  5. BUPIVACAINE. [Suspect]
     Active Substance: BUPIVACAINE
     Dosage: 2.999 MG, \DAY
     Route: 037
  6. FENTANYL. [Suspect]
     Active Substance: FENTANYL
     Dosage: 1.9994 MG, \DAY
     Route: 037

REACTIONS (17)
  - Headache [Unknown]
  - Road traffic accident [Unknown]
  - Arthritis [Unknown]
  - Gait disturbance [Unknown]
  - Neuralgia [Unknown]
  - Device failure [Unknown]
  - Neck pain [Unknown]
  - Pain in extremity [Unknown]
  - Performance status decreased [Unknown]
  - Hypoaesthesia [Unknown]
  - Implant site scar [Unknown]
  - Pain [Unknown]
  - Skin injury [Unknown]
  - Chest pain [Unknown]
  - Back pain [Unknown]
  - Musculoskeletal pain [Unknown]
  - Off label use [Unknown]

NARRATIVE: CASE EVENT DATE: 20100924
